FAERS Safety Report 14186957 (Version 1)
Quarter: 2017Q4

REPORT INFORMATION
  Report Type: Spontaneous
  Country: DE (occurrence: DE)
  Receive Date: 20171114
  Receipt Date: 20171114
  Transmission Date: 20180321
  Serious: Yes (Other)
  Sender: FDA-Public Use
  Company Number: DE-BAYER-2017-218735

PATIENT
  Age: 49 Year
  Sex: Male
  Weight: 104 kg

DRUGS (1)
  1. ULTRAVIST [Suspect]
     Active Substance: IOPROMIDE
     Dosage: 8 ML, UNK (5 ML/S)
     Route: 013

REACTIONS (3)
  - Blindness cortical [Recovered/Resolved]
  - Posterior reversible encephalopathy syndrome [Recovered/Resolved]
  - Epilepsy [Recovered/Resolved]
